FAERS Safety Report 8579313-8 (Version None)
Quarter: 2012Q3

REPORT INFORMATION
  Report Type: 
  Country: None (occurrence: None)
  Receive Date: 20120808
  Receipt Date: 20110203
  Transmission Date: 20120928
  Serious: No
  Sender: FDA-Public Use
  Company Number: US-BAYER-2010-005402

PATIENT
  Age: 77 Year
  Sex: Male
  Weight: 73.469 kg

DRUGS (2)
  1. EOVIST [Suspect]
     Indication: NUCLEAR MAGNETIC RESONANCE IMAGING LIVER
     Dosage: 10 ML, ONCE (2/SEC)
     Route: 042
     Dates: start: 20101201, end: 20101201
  2. EOVIST [Suspect]
     Indication: HEPATIC NEOPLASM MALIGNANT

REACTIONS (1)
  - URTICARIA [None]
